FAERS Safety Report 4548950-X (Version None)
Quarter: 2004Q4

REPORT INFORMATION
  Report Type: 
  Country: None (occurrence: None)
  Receive Date: 20041227
  Receipt Date: 20040902
  Transmission Date: 20050328
  Serious: No
  Sender: FDA-Public Use
  Company Number: 04P-163-0272216-00

PATIENT
  Age: 82 Year
  Sex: Female
  Weight: 73.9363 kg

DRUGS (5)
  1. HUMIRA [Suspect]
     Indication: RHEUMATOID ARTHRITIS
     Dosage: 40 MG, 1 IN 2 WK, SUBCUTANEOUS
     Route: 058
     Dates: start: 20040226
  2. PREDNISONE [Concomitant]
  3. BENICAR [Concomitant]
  4. AMLODIPINE BESYLATE [Concomitant]
  5. ACETAMINOPHEN [Concomitant]

REACTIONS (1)
  - NASOPHARYNGITIS [None]
